FAERS Safety Report 23898919 (Version 1)
Quarter: 2024Q2

REPORT INFORMATION
  Report Type: Report from Study
  Country: US (occurrence: US)
  Receive Date: 20240525
  Receipt Date: 20240525
  Transmission Date: 20240715
  Serious: Yes (Other)
  Sender: FDA-Public Use
  Company Number: US-ABBVIE-5770959

PATIENT
  Age: 65 Year
  Sex: Female
  Weight: 84 kg

DRUGS (6)
  1. RINVOQ [Suspect]
     Active Substance: UPADACITINIB
     Indication: Dermatitis atopic
     Dosage: FORM STRENGTH: 15MG
     Route: 048
     Dates: start: 202310, end: 202402
  2. HYDROCHLOROTHIAZIDE [Concomitant]
     Active Substance: HYDROCHLOROTHIAZIDE
     Indication: Hypertension
  3. ROSUVASTATIN [Concomitant]
     Active Substance: ROSUVASTATIN
     Indication: Blood cholesterol increased
  4. VICTOZA [Concomitant]
     Active Substance: LIRAGLUTIDE
     Indication: Diabetes mellitus
  5. FARXIGA [Concomitant]
     Active Substance: DAPAGLIFLOZIN PROPANEDIOL
     Indication: Diabetes mellitus
  6. OLMESARTAN [Concomitant]
     Active Substance: OLMESARTAN
     Indication: Hypertension

REACTIONS (9)
  - Laboratory test abnormal [Recovering/Resolving]
  - Adverse drug reaction [Not Recovered/Not Resolved]
  - Haemoglobin decreased [Recovering/Resolving]
  - Spinal cord disorder [Not Recovered/Not Resolved]
  - Mobility decreased [Unknown]
  - Fatigue [Recovered/Resolved with Sequelae]
  - Radiculopathy [Not Recovered/Not Resolved]
  - Feeling abnormal [Unknown]
  - Illness [Unknown]

NARRATIVE: CASE EVENT DATE: 20231101
